FAERS Safety Report 8963179 (Version 1)
Quarter: 2012Q4

REPORT INFORMATION
  Report Type: 
  Country: US (occurrence: US)
  Receive Date: 20121213
  Receipt Date: 20121213
  Transmission Date: 20130627
  Serious: Yes (Hospitalization)
  Sender: FDA-Public Use
  Company Number: US-VERTEX PHARMACEUTICALS INC.-2012-025992

PATIENT
  Age: 61 None
  Sex: Female
  Weight: 71 kg

DRUGS (11)
  1. VX-950 (TELAPREVIR) [Suspect]
     Indication: HEPATITIS C
     Dosage: 750 mg, tid
     Route: 048
  2. RIBAPAK [Concomitant]
     Indication: HEPATITIS C
     Dosage: 1000 mg, qd
  3. PEGASYS [Concomitant]
     Indication: HEPATITIS C
     Dosage: 180 ?g, UNK
  4. POTASSIUM [Concomitant]
     Dosage: 75 mg, UNK
  5. ADVIL                              /00044201/ [Concomitant]
     Dosage: 200 mg, UNK
  6. CALCIUM +D                         /00944201/ [Concomitant]
  7. ZOVIRAX                            /00587301/ [Concomitant]
     Dosage: 200 mg, UNK
  8. AZITHROMYCIN [Concomitant]
     Dosage: 250 mg, UNK
  9. ESTRADIOL [Concomitant]
     Dosage: 0.5 mg, UNK
  10. PROTONIX [Concomitant]
  11. LEVOTHYROXIN [Concomitant]
     Dosage: 75 ?g, UNK

REACTIONS (4)
  - Chest pain [Unknown]
  - Cough [Unknown]
  - Upper-airway cough syndrome [Unknown]
  - Hypokalaemia [Recovered/Resolved]
